FAERS Safety Report 8595125-3 (Version None)
Quarter: 2012Q3

REPORT INFORMATION
  Report Type: 
  Country: None (occurrence: None)
  Receive Date: 20120815
  Receipt Date: 20120806
  Transmission Date: 20120928
  Serious: Yes (Hospitalization, Other)
  Sender: FDA-Public Use
  Company Number: JP-ELI_LILLY_AND_COMPANY-JP201106005326

PATIENT
  Sex: Female

DRUGS (1)
  1. FORTEO [Suspect]
     Dosage: UNK
     Route: 058
     Dates: start: 20110501, end: 20120510

REACTIONS (7)
  - MUSCLE SPASMS [None]
  - PRURITUS [None]
  - POSTURE ABNORMAL [None]
  - GAIT DISTURBANCE [None]
  - CARDIOVASCULAR DISORDER [None]
  - SPINAL COMPRESSION FRACTURE [None]
  - LOSS OF CONTROL OF LEGS [None]
